FAERS Safety Report 17082376 (Version 1)
Quarter: 2019Q4

REPORT INFORMATION
  Report Type: Spontaneous
  Country: BD (occurrence: BD)
  Receive Date: 20191127
  Receipt Date: 20191127
  Transmission Date: 20200122
  Serious: Yes (Hospitalization, Other)
  Sender: FDA-Public Use
  Company Number: BD-SA-2019SA324741

PATIENT
  Age: 9 Year
  Sex: Male
  Weight: 22 kg

DRUGS (6)
  1. PRIMAQUINE PHOSPHATE. [Suspect]
     Active Substance: PRIMAQUINE PHOSPHATE
     Indication: PLASMODIUM VIVAX INFECTION
     Dosage: 2 DF, QD (15 MG/TABLET)
     Dates: start: 20180628, end: 20180702
  2. PRIMAQUINE PHOSPHATE. [Suspect]
     Active Substance: PRIMAQUINE PHOSPHATE
     Dosage: 0.25 MG/KG, 1X
     Dates: start: 20180726, end: 20180726
  3. ARTEMETHER/LUMEFANTRINE [Concomitant]
     Active Substance: ARTEMETHER\LUMEFANTRINE
     Indication: PLASMODIUM FALCIPARUM INFECTION
     Dosage: SIX DOSES (TOTAL DOSAGE OF ARTEMETHER: 10.9 MG/KG BW, TOTAL DOSAGE OF LUMEFANTRINE: 65.45/KG BW)
     Dates: start: 20180726, end: 20180728
  4. CEFTRIAXONE. [Concomitant]
     Active Substance: CEFTRIAXONE
     Dosage: 1 G
     Route: 042
     Dates: start: 20180726
  5. CHLOROQUINE. [Concomitant]
     Active Substance: CHLOROQUINE
     Indication: PLASMODIUM VIVAX INFECTION
     Dosage: 1.5 DF, QD (250 MG =150 MG BASE/TABLET) TO BE TAKEN ON DAYS 0, 1, AND 2 (1.5TABLETS/DAY, TOTAL DOSE:
     Dates: start: 20180628, end: 20180630
  6. ONDANSETRON [Concomitant]
     Active Substance: ONDANSETRON
     Indication: NAUSEA
     Dosage: 4 MG, TID
     Route: 042
     Dates: start: 20180726

REACTIONS (6)
  - Overdose [Recovered/Resolved]
  - Pyrexia [Recovered/Resolved]
  - Fatigue [Recovered/Resolved]
  - Haemoglobinuria [Recovered/Resolved]
  - Haemolysis [Recovered/Resolved]
  - Jaundice [Recovered/Resolved]

NARRATIVE: CASE EVENT DATE: 20180628
